FAERS Safety Report 11689496 (Version 1)
Quarter: 2015Q4

REPORT INFORMATION
  Report Type: Spontaneous
  Country: US (occurrence: US)
  Receive Date: 20151102
  Receipt Date: 20151102
  Transmission Date: 20160304
  Serious: No
  Sender: FDA-Public Use
  Company Number: US-WEST-WARD PHARMACEUTICALS CORP.-US-H14001-15-00589

PATIENT
  Sex: Female

DRUGS (3)
  1. ISOSORBIDE MONONITRATE. [Suspect]
     Active Substance: ISOSORBIDE MONONITRATE
     Dosage: 1 TABLET IN THE MORNING, ADDITIONAL 1/2 TABLET IN THE EVENING IF NECESSARY
     Route: 065
  2. ISOSORBIDE MONONITRATE. [Suspect]
     Active Substance: ISOSORBIDE MONONITRATE
     Indication: PRODUCT USED FOR UNKNOWN INDICATION
     Dosage: 1 TABLET IN THE MORNING, ADDITIONAL 1/2 TABLET IN THE EVENING IF NECESSARY
     Route: 065
  3. ISOSORBIDE MONONITRATE. [Concomitant]
     Active Substance: ISOSORBIDE MONONITRATE
     Indication: PRODUCT USED FOR UNKNOWN INDICATION
     Dosage: 1 TABLET IN THE MORNING, ADDITIONAL 1/2 TABLET IN THE EVENING IF NECESSARY
     Route: 065

REACTIONS (3)
  - Product substitution issue [None]
  - Feeling abnormal [Unknown]
  - Dizziness [Unknown]
